FAERS Safety Report 19469241 (Version 1)
Quarter: 2021Q2

REPORT INFORMATION
  Report Type: Report from Study
  Country: None (occurrence: CA)
  Receive Date: 20210629
  Receipt Date: 20210629
  Transmission Date: 20210717
  Serious: Yes (Other)
  Sender: FDA-Public Use
  Company Number: CA-ABBVIE-21K-028-3966850-00

PATIENT
  Sex: Female

DRUGS (1)
  1. SKYRIZI [Suspect]
     Active Substance: RISANKIZUMAB-RZAA
     Indication: PSORIASIS
     Route: 058
     Dates: start: 20210201

REACTIONS (9)
  - Knee arthroplasty [Unknown]
  - Alopecia [Unknown]
  - Thyroid disorder [Unknown]
  - Back pain [Unknown]
  - Pain [Unknown]
  - Fall [Unknown]
  - Blood glucose increased [Unknown]
  - Loss of consciousness [Recovered/Resolved]
  - Contusion [Unknown]

NARRATIVE: CASE EVENT DATE: 2021
